FAERS Safety Report 8970430 (Version 1)
Quarter: 2012Q4

REPORT INFORMATION
  Report Type: 
  Country: DE (occurrence: DE)
  Receive Date: 20121218
  Receipt Date: 20121218
  Transmission Date: 20130627
  Serious: Yes (Hospitalization)
  Sender: FDA-Public Use
  Company Number: DE-SANOFI-AVENTIS-2012SA091318

PATIENT
  Age: 69 Year
  Sex: Female
  Weight: 73 kg

DRUGS (5)
  1. MULTAQ [Suspect]
     Indication: DRUG USE FOR UNKNOWN INDICATION
     Route: 048
     Dates: start: 20120808, end: 20120918
  2. RAMIPRIL [Concomitant]
     Indication: HYPERTENSION ARTERIAL
     Route: 048
  3. METOPROLOL [Concomitant]
     Indication: PROPHYLAXIS
     Route: 048
  4. MARCUMAR [Concomitant]
     Indication: DRUG USE FOR UNKNOWN INDICATION
     Dosage: acc. to INR
     Route: 048
  5. SIMVASTATIN [Concomitant]
     Indication: HYPERCHOLESTEROLEMIA

REACTIONS (1)
  - Electrocardiogram abnormal [Recovered/Resolved]
